FAERS Safety Report 5770517-6 (Version None)
Quarter: 2008Q2

REPORT INFORMATION
  Report Type: 
  Country: None (occurrence: None)
  Receive Date: 20080613
  Receipt Date: 20080507
  Transmission Date: 20081010
  Serious: No
  Sender: FDA-Public Use
  Company Number: US-ABBOTT-08P-163-0450748-00

PATIENT
  Sex: Female
  Weight: 59.02 kg

DRUGS (3)
  1. HUMIRA [Suspect]
     Indication: CROHN'S DISEASE
     Route: 058
     Dates: start: 20080401
  2. IMODIUM [Concomitant]
     Indication: CROHN'S DISEASE
     Route: 048
  3. IBANDRONATE SODIUM [Concomitant]
     Indication: BLOOD CALCIUM
     Route: 048

REACTIONS (1)
  - OVERDOSE [None]
